FAERS Safety Report 9257282 (Version 2)
Quarter: 2013Q2

REPORT INFORMATION
  Report Type: Spontaneous
  Country: GB (occurrence: GB)
  Receive Date: 20130426
  Receipt Date: 20130603
  Transmission Date: 20140414
  Serious: Yes (Hospitalization, Other)
  Sender: FDA-Public Use
  Company Number: PHFR2013GB002367

PATIENT
  Age: 30 Year
  Sex: Male

DRUGS (4)
  1. CLOZARIL [Suspect]
     Indication: SCHIZOPHRENIA
     Dosage: UNK
     Route: 048
     Dates: start: 20130401
  2. CLOZAPINE [Concomitant]
     Dosage: 300 MG, UNK
  3. VALPROAT [Concomitant]
     Dosage: 500 MG, UNK
     Route: 048
  4. MIRTAZAPINE [Concomitant]
     Dosage: 45 MG, UNK
     Route: 048

REACTIONS (7)
  - Viral infection [Unknown]
  - Malaise [Unknown]
  - Blood pressure decreased [Unknown]
  - Pericarditis [Not Recovered/Not Resolved]
  - Pericardial effusion [Unknown]
  - Heart rate increased [Unknown]
  - Platelet count decreased [Unknown]
